FAERS Safety Report 5782392-4 (Version None)
Quarter: 2008Q2

REPORT INFORMATION
  Report Type: 
  Country: None (occurrence: None)
  Receive Date: 20080623
  Receipt Date: 20080611
  Transmission Date: 20081010
  Serious: Yes (Hospitalization)
  Sender: FDA-Public Use
  Company Number: HK-PFIZER INC-2008048649

PATIENT
  Sex: Male
  Weight: 41 kg

DRUGS (4)
  1. SU-011,248 [Suspect]
     Indication: NASOPHARYNGEAL CANCER
     Route: 048
     Dates: start: 20080313, end: 20080325
  2. SU-011,248 [Suspect]
     Route: 048
  3. LEVOTHYROXINE SODIUM [Concomitant]
     Route: 048
     Dates: start: 20080602, end: 20080603
  4. PREDNISOLONE [Concomitant]
     Route: 048
     Dates: start: 20080521, end: 20080521

REACTIONS (1)
  - PLEURAL EFFUSION [None]
